FAERS Safety Report 4426777-7 (Version None)
Quarter: 2004Q3

REPORT INFORMATION
  Report Type: 
  Country: None (occurrence: None)
  Receive Date: 20040812
  Receipt Date: 20040812
  Transmission Date: 20050211
  Serious: No
  Sender: FDA-Public Use
  Company Number: None

PATIENT
  Age: 48 Year
  Sex: Male
  Weight: 86.4 kg

DRUGS (13)
  1. ENFUVIRTIDE [Suspect]
     Indication: HIV INFECTION
     Dosage: 90 MG   BID   SUBCUTANEOUS
     Route: 058
  2. CAPSAICIN [Concomitant]
  3. DIPHENHYDRAMINE HCL [Concomitant]
  4. FLUOCINONIDE TOP LOTION [Concomitant]
  5. GAPAPENTIN [Concomitant]
  6. GENT/MYCELEX/HC [Concomitant]
  7. INDINAVIR [Concomitant]
  8. METHADONE HCL [Concomitant]
  9. M.V.I. [Concomitant]
  10. RANITIDINE [Concomitant]
  11. RITONAVIR [Concomitant]
  12. SILDENAFIL [Concomitant]
  13. TCN/NYST/DEX/DIPHEN PO [Concomitant]

REACTIONS (7)
  - ANGIONEUROTIC OEDEMA [None]
  - CHROMATURIA [None]
  - DYSPNOEA [None]
  - FLUSHING [None]
  - RASH PRURITIC [None]
  - SWELLING FACE [None]
  - TACHYCARDIA [None]
